FAERS Safety Report 7508034-5 (Version None)
Quarter: 2011Q2

REPORT INFORMATION
  Report Type: 
  Country: None (occurrence: None)
  Receive Date: 20110527
  Receipt Date: 20110517
  Transmission Date: 20111010
  Serious: Yes (Life-Threatening, Hospitalization, Other)
  Sender: FDA-Public Use
  Company Number: US-ELI_LILLY_AND_COMPANY-US201101000051

PATIENT
  Sex: Female

DRUGS (1)
  1. FORTEO [Suspect]
     Indication: OSTEOPOROSIS
     Dosage: 20 UG, DAILY (1/D)
     Dates: start: 20101101

REACTIONS (6)
  - THERMAL BURN [None]
  - FATIGUE [None]
  - HYPERSOMNIA [None]
  - ADVERSE DRUG REACTION [None]
  - CELLULITIS [None]
  - LEUKOCYTOCLASTIC VASCULITIS [None]
